FAERS Safety Report 17347340 (Version 1)
Quarter: 2020Q1

REPORT INFORMATION
  Report Type: Report from Study
  Country: US (occurrence: US)
  Receive Date: 20200129
  Receipt Date: 20200129
  Transmission Date: 20200409
  Serious: No
  Sender: FDA-Public Use
  Company Number: US-EXELIXIS-CABO-19022183

PATIENT
  Age: 61 Year
  Sex: Female

DRUGS (2)
  1. CABOMETYX [Suspect]
     Active Substance: CABOZANTINIB S-MALATE
     Indication: HEPATIC CANCER
     Dosage: 40 MG, QD (WITHOUT FOOD)
     Route: 048
     Dates: start: 20190614
  2. SORAFENIB [Concomitant]
     Active Substance: SORAFENIB
     Dosage: UNK

REACTIONS (21)
  - Blood pressure increased [Unknown]
  - Flatulence [Unknown]
  - Fatigue [Unknown]
  - Arteriosclerosis coronary artery [Unknown]
  - White blood cell count decreased [Unknown]
  - Aspartate aminotransferase increased [Unknown]
  - Headache [Unknown]
  - Glomerular filtration rate decreased [Unknown]
  - Bone pain [Unknown]
  - Blood creatinine increased [Unknown]
  - Chest pain [Unknown]
  - Blood urea increased [Unknown]
  - Blood glucose increased [Unknown]
  - Palmar-plantar erythrodysaesthesia syndrome [Recovering/Resolving]
  - Alanine aminotransferase increased [Unknown]
  - Pulmonary mass [Unknown]
  - Neutrophil count decreased [Unknown]
  - Malignant neoplasm progression [Unknown]
  - Arthropathy [Unknown]
  - Arthralgia [Not Recovered/Not Resolved]
  - Diarrhoea [Unknown]

NARRATIVE: CASE EVENT DATE: 201906
